FAERS Safety Report 4300560-5 (Version None)
Quarter: 2004Q1

REPORT INFORMATION
  Report Type: 
  Country: None (occurrence: None)
  Receive Date: 20040217
  Receipt Date: 20040202
  Transmission Date: 20041129
  Serious: Yes (Death)
  Sender: FDA-Public Use
  Company Number: A112095

PATIENT
  Sex: Male
  Weight: 2.2 kg

DRUGS (8)
  1. SILDENAFIL (SILDENAFIL) [Suspect]
     Indication: PULMONARY HYPERTENSION
     Dosage: 2.5 MG (QID), NASOGASTRIC TUBE
     Dates: start: 20001115
  2. HYDROCHLOROTHIAZIDE [Concomitant]
  3. SPIRONOLACTONE [Concomitant]
  4. FUROSEMIDE [Concomitant]
  5. LEVOTHYROXINE SODIUM [Concomitant]
  6. BUDESONIDE (BUDESONIDE) [Concomitant]
  7. SALBUTAMOL (SALBUTAMOL) [Concomitant]
  8. RANITIDINE [Concomitant]

REACTIONS (2)
  - PNEUMONIA RESPIRATORY SYNCYTIAL VIRAL [None]
  - RESPIRATORY DISTRESS [None]
